FAERS Safety Report 9045260 (Version 2)
Quarter: 2013Q1

REPORT INFORMATION
  Report Type: Spontaneous
  Country: US (occurrence: US)
  Receive Date: 20130131
  Receipt Date: 20130306
  Transmission Date: 20140127
  Serious: Yes (Other)
  Sender: FDA-Public Use
  Company Number: US-NOVOPROD-369678

PATIENT
  Sex: Male

DRUGS (3)
  1. VICTOZA [Suspect]
     Indication: TYPE 2 DIABETES MELLITUS
     Dosage: 1.8 MG QD
     Route: 058
  2. VICTOZA [Suspect]
     Dosage: 1.2 MG QD
     Route: 058
  3. VICTOZA [Suspect]
     Dosage: 0.6 MG QD
     Route: 058
     Dates: start: 201203

REACTIONS (4)
  - Metastatic malignant melanoma [Recovering/Resolving]
  - Weight decreased [Recovered/Resolved]
  - Lethargy [Recovered/Resolved]
  - Blood glucose increased [Recovered/Resolved]
